FAERS Safety Report 6417056-7 (Version None)
Quarter: 2009Q4

REPORT INFORMATION
  Report Type: 
  Country: None (occurrence: None)
  Receive Date: 20091028
  Receipt Date: 20091023
  Transmission Date: 20100525
  Serious: Yes (Hospitalization, Other)
  Sender: FDA-Public Use
  Company Number: US-ASTRAZENECA-2007UW02389

PATIENT
  Age: 20385 Day
  Sex: Male
  Weight: 98.4 kg

DRUGS (34)
  1. SEROQUEL [Suspect]
     Indication: BIPOLAR DISORDER
     Dosage: 25 MG - 600 MG
     Route: 048
     Dates: start: 20010822
  2. SEROQUEL [Suspect]
     Route: 048
     Dates: start: 20010828, end: 20050601
  3. GEODON [Concomitant]
     Dates: start: 20050201, end: 20050601
  4. ABILIFY [Concomitant]
     Dates: start: 20050601, end: 20050701
  5. DEPAKOTE [Concomitant]
     Dates: start: 20010601, end: 20010701
  6. EFFEXOR XR [Concomitant]
     Dosage: STRENGTH - 37.5 MG, 75 MG, 150 MG
     Route: 048
  7. ATIVAN [Concomitant]
     Indication: ANXIETY
     Route: 048
     Dates: end: 20050613
  8. VISTARIL [Concomitant]
     Indication: SLEEP DISORDER
     Route: 048
  9. PAXIL [Concomitant]
     Dosage: STRENGTH- 20 MG, 40 MG.
  10. WELLBUTRIN XL [Concomitant]
  11. TRAZODONE [Concomitant]
     Indication: SLEEP DISORDER
     Dosage: STRENTH 50 MG, 100 MG
  12. LEXAPRO [Concomitant]
     Indication: DEPRESSION
  13. ZYPREXA [Concomitant]
  14. GEMFIBROZIL [Concomitant]
     Indication: BLOOD TRIGLYCERIDES
     Route: 048
  15. NORTRIPTYLINE [Concomitant]
  16. KLONOPIN [Concomitant]
     Indication: ANXIETY
  17. HYDROCHLOROTHIAZIDE [Concomitant]
     Indication: BLOOD PRESSURE
  18. ASPIRIN [Concomitant]
     Indication: MYOCARDIAL INFARCTION
     Dosage: 81 MG - 325 MG
     Route: 048
  19. ASPIRIN [Concomitant]
     Indication: CEREBROVASCULAR ACCIDENT
     Dosage: 81 MG - 325 MG
     Route: 048
  20. MOTRIN [Concomitant]
     Indication: PAIN
     Dosage: 600 MG - 2400 MG
     Route: 048
  21. PEPCID [Concomitant]
     Route: 048
  22. AMOXICILLIN [Concomitant]
     Route: 048
  23. GLYBURIDE [Concomitant]
     Dosage: 5 - 10 MG DAILY
     Route: 048
  24. DIOVAN [Concomitant]
     Indication: BLOOD PRESSURE
     Route: 048
  25. RANITIDINE [Concomitant]
     Indication: DYSPEPSIA
     Dosage: 150 MG TWICE AS NEEDED
     Route: 048
  26. ZESTRIL [Concomitant]
     Indication: BLOOD PRESSURE
     Route: 048
  27. PRAVACHOL [Concomitant]
     Indication: BLOOD CHOLESTEROL
     Dosage: 40 - 80 MG DAILY
     Route: 048
  28. CYMBALTA [Concomitant]
     Dates: start: 20080519
  29. CYMBALTA [Concomitant]
     Dosage: STRENGTH- 30 MG, 60 MG
  30. RISPERDAL [Concomitant]
     Dates: start: 20080506
  31. NEURONTIN [Concomitant]
     Dates: start: 20080506
  32. NEURONTIN [Concomitant]
     Route: 048
  33. LIPITOR [Concomitant]
     Indication: BLOOD CHOLESTEROL
     Dates: start: 20080506
  34. LIPITOR [Concomitant]
     Dosage: 40 MG - 80 MG DAILY
     Route: 048

REACTIONS (44)
  - ADVERSE DRUG REACTION [None]
  - AMNESIA [None]
  - BLOOD CHOLESTEROL INCREASED [None]
  - CARDIOVASCULAR DISORDER [None]
  - CEREBROVASCULAR ACCIDENT [None]
  - CHEST PAIN [None]
  - CHOLELITHIASIS [None]
  - CONFUSIONAL STATE [None]
  - CRANIAL NERVE DISORDER [None]
  - DEHYDRATION [None]
  - DEPRESSION [None]
  - DIABETIC COMPLICATION [None]
  - DIABETIC NEPHROPATHY [None]
  - DIABETIC NEUROPATHY [None]
  - DYSARTHRIA [None]
  - DYSURIA [None]
  - EJACULATION DISORDER [None]
  - FACIAL PALSY [None]
  - GASTROOESOPHAGEAL REFLUX DISEASE [None]
  - HYPERCHOLESTEROLAEMIA [None]
  - HYPERSENSITIVITY [None]
  - HYPOAESTHESIA FACIAL [None]
  - HYPOGLYCAEMIA [None]
  - LUNG NEOPLASM [None]
  - LYMPHADENOPATHY [None]
  - MAJOR DEPRESSION [None]
  - NEOPLASM PROSTATE [None]
  - OSTEOARTHRITIS [None]
  - PAIN IN EXTREMITY [None]
  - PARAESTHESIA [None]
  - PEPTIC ULCER [None]
  - PROSTATIC DISORDER [None]
  - RASH [None]
  - SALIVARY GLAND CALCULUS [None]
  - SKIN CANDIDA [None]
  - SKIN LESION [None]
  - SLEEP DISORDER [None]
  - SPEECH DISORDER [None]
  - TESTICULAR PAIN [None]
  - TYPE 1 DIABETES MELLITUS [None]
  - TYPE 2 DIABETES MELLITUS [None]
  - UMBILICAL HERNIA [None]
  - URINARY TRACT INFECTION [None]
  - VOMITING [None]
